FAERS Safety Report 20877292 (Version 2)
Quarter: 2025Q1

REPORT INFORMATION
  Report Type: Report from Study
  Country: IT (occurrence: IT)
  Receive Date: 20220526
  Receipt Date: 20250228
  Transmission Date: 20250409
  Serious: Yes (Death)
  Sender: MYLAN
  Company Number: None

PATIENT
  Age: 89 Year
  Sex: Male

DRUGS (16)
  1. ARIXTRA [Suspect]
     Active Substance: FONDAPARINUX SODIUM
     Indication: Cardiovascular event prophylaxis
     Dates: start: 20220413, end: 20220417
  2. ASPIRIN [Suspect]
     Active Substance: ASPIRIN
     Indication: Deep vein thrombosis
     Dates: start: 20220101, end: 20220417
  3. ENOXAPARIN [Suspect]
     Active Substance: ENOXAPARIN
     Indication: Cardiovascular event prophylaxis
     Dosage: 4000 KILO-INTERNATIONAL UNIT, QD
     Dates: end: 20220413
  4. COUMADIN [Suspect]
     Active Substance: WARFARIN SODIUM
     Indication: Cardiovascular event prophylaxis
     Dosage: 1 DOSAGE FORM, QD
     Dates: start: 20220417
  5. FERROUS SULFATE [Concomitant]
     Active Substance: FERROUS SULFATE
  6. LANSOPRAZOLE [Concomitant]
     Active Substance: LANSOPRAZOLE
  7. SILODOSIN [Concomitant]
     Active Substance: SILODOSIN
  8. CALCIUM CARBONATE [Concomitant]
     Active Substance: CALCIUM CARBONATE
  9. Tavor [Concomitant]
  10. Dobetin [Concomitant]
  11. Folina [Concomitant]
  12. LEVOTHYROXINE SODIUM [Concomitant]
     Active Substance: LEVOTHYROXINE SODIUM
  13. NALOXONE HYDROCHLORIDE\OXYCODONE HYDROCHLORIDE [Concomitant]
     Active Substance: NALOXONE HYDROCHLORIDE\OXYCODONE HYDROCHLORIDE
  14. CORDARONE [Concomitant]
     Active Substance: AMIODARONE HYDROCHLORIDE
  15. MEDROL [Concomitant]
     Active Substance: METHYLPREDNISOLONE
  16. LASIX [Concomitant]
     Active Substance: FUROSEMIDE

REACTIONS (4)
  - Hypotension [Fatal]
  - Shock haemorrhagic [Fatal]
  - Anaemia [Fatal]
  - Haematoma muscle [Fatal]

NARRATIVE: CASE EVENT DATE: 20220418
